FAERS Safety Report 9848884 (Version 1)
Quarter: 2013Q4

REPORT INFORMATION
  Report Type: Spontaneous
  Country: US (occurrence: None)
  Receive Date: 20131226
  Receipt Date: 20131226
  Transmission Date: 20140711
  Serious: Yes (Other)
  Sender: FDA-Public Use
  Company Number: PHEH2012US019539

PATIENT
  Sex: Female

DRUGS (7)
  1. EXTAVIA [Suspect]
     Dosage: SOLUTION FOR INJECTION, 0.25 MG (1 ML) EVERY OTHER DAY, SUBCUTANEOUS
  2. LYRICA (PREGABALIN) [Concomitant]
  3. CENESTIN (ESTROGENS CONJUGATED) [Concomitant]
  4. CALCIUM (CALCIUM) [Concomitant]
  5. IBUPROFEN (IBUPROFEN) [Concomitant]
  6. TYLENOL (PARACETAMOL) [Concomitant]
  7. TEGRETOL (CARBAMAZEPINE) [Concomitant]

REACTIONS (2)
  - Convulsion [None]
  - Pain [None]
